FAERS Safety Report 13313630 (Version 1)
Quarter: 2017Q1

REPORT INFORMATION
  Report Type: Spontaneous
  Country: IN (occurrence: IN)
  Receive Date: 20170309
  Receipt Date: 20170309
  Transmission Date: 20170428
  Serious: Yes (Other)
  Sender: FDA-Public Use
  Company Number: IN-CELGENEUS-IND-2017028369

PATIENT
  Age: 60 Year
  Sex: Male

DRUGS (3)
  1. BORTEZOMIB [Concomitant]
     Active Substance: BORTEZOMIB
     Indication: PLASMA CELL MYELOMA
     Route: 065
  2. THALIDOMIDE [Suspect]
     Active Substance: THALIDOMIDE
     Indication: PLASMA CELL MYELOMA
     Route: 048
  3. DEXAMETHASONE. [Concomitant]
     Active Substance: DEXAMETHASONE
     Indication: PLASMA CELL MYELOMA
     Route: 065

REACTIONS (7)
  - Spinal compression fracture [Unknown]
  - Blood creatinine increased [Unknown]
  - Bicytopenia [Unknown]
  - Bone lesion [Unknown]
  - Acute kidney injury [Unknown]
  - Urine output decreased [Unknown]
  - Proteinuria [Unknown]
